FAERS Safety Report 24191113 (Version 1)
Quarter: 2024Q3

REPORT INFORMATION
  Report Type: Spontaneous
  Country: US (occurrence: None)
  Receive Date: 20240808
  Receipt Date: 20240808
  Transmission Date: 20241017
  Serious: Yes (Hospitalization)
  Sender: Public
  Company Number: None

PATIENT
  Age: 84 Year
  Sex: Female
  Weight: 50.1 kg

DRUGS (4)
  1. LEQEMBI [Suspect]
     Active Substance: LECANEMAB-IRMB
     Indication: Dementia Alzheimer^s type
     Dosage: OTHER FREQUENCY : EVERY 2 WEEKS;?
     Route: 040
     Dates: start: 20240708, end: 20240805
  2. lecanemab-irmb (LEQEMBI) [Concomitant]
     Dates: start: 20240708, end: 20240708
  3. lecanemab-irmb (LEQEMBI) [Concomitant]
     Dates: start: 20240722, end: 20240722
  4. lecanemab-irmb (LEQEMBI) [Concomitant]
     Dates: start: 20240805, end: 20240805

REACTIONS (3)
  - Amyloid related imaging abnormality-microhaemorrhages and haemosiderin deposits [None]
  - Road traffic accident [None]
  - Loss of personal independence in daily activities [None]

NARRATIVE: CASE EVENT DATE: 20240807
